FAERS Safety Report 9101858 (Version 2)
Quarter: 2013Q4

REPORT INFORMATION
  Report Type: Spontaneous
  Country: US (occurrence: US)
  Receive Date: 20130218
  Receipt Date: 20131101
  Transmission Date: 20140711
  Serious: Yes (Other)
  Sender: FDA-Public Use
  Company Number: US-BAYER-2013-020405

PATIENT
  Age: 63 Year
  Sex: Female
  Weight: 59 kg

DRUGS (7)
  1. BETASERON [Suspect]
     Indication: MULTIPLE SCLEROSIS
     Dosage: 1 ML, QOD
     Route: 058
     Dates: start: 1996
  2. BETASERON [Suspect]
     Indication: MULTIPLE SCLEROSIS
     Dosage: 0.3 MG, BIW
     Route: 058
  3. PREMARIN [Concomitant]
     Indication: VULVOVAGINAL DRYNESS
     Dosage: 1/4 DOSE, OW
  4. CLOBETASOL PROPIONATE [Concomitant]
     Indication: LICHEN SCLEROSUS
     Dosage: UNK UNK, BIW
  5. METRONIDAZOLE [Concomitant]
     Indication: ROSACEA
     Dosage: UNK UNK, OW
  6. CENTRUM SILVER [Concomitant]
     Dosage: UNK UNK, QD
  7. CALCIUM VIT D [Concomitant]
     Dosage: UNK UNK, QD

REACTIONS (6)
  - Deafness [Unknown]
  - Injection site reaction [None]
  - Injection site erosion [Recovered/Resolved]
  - Injection site mass [Recovered/Resolved]
  - Injection site bruising [Recovered/Resolved]
  - Injection site induration [None]
